FAERS Safety Report 9014556 (Version 2)
Quarter: 2013Q2

REPORT INFORMATION
  Report Type: Spontaneous
  Country: GB (occurrence: GB)
  Receive Date: 20130115
  Receipt Date: 20130430
  Transmission Date: 20140414
  Serious: Yes (Other)
  Sender: FDA-Public Use
  Company Number: GB-PFIZER INC-2013010520

PATIENT
  Age: 20 Year
  Sex: Male
  Weight: 90.9 kg

DRUGS (1)
  1. REFACTO AF [Suspect]
     Dosage: 2500 UNITS, THREE TIMES A WEEK
     Route: 042
     Dates: start: 201112

REACTIONS (1)
  - Factor VIII inhibition [Recovered/Resolved]
